FAERS Safety Report 22211327 (Version 1)
Quarter: 2023Q2

REPORT INFORMATION
  Report Type: Spontaneous
  Country: US (occurrence: US)
  Receive Date: 20230414
  Receipt Date: 20230414
  Transmission Date: 20230722
  Serious: No
  Sender: FDA-Public Use
  Company Number: US-LEO Pharma-351172

PATIENT
  Sex: Male

DRUGS (1)
  1. ADBRY [Suspect]
     Active Substance: TRALOKINUMAB-LDRM
     Indication: Eczema
     Dosage: UNKNOWN
     Dates: start: 20230309, end: 20230309

REACTIONS (8)
  - Metamorphopsia [Unknown]
  - Skin exfoliation [Unknown]
  - Localised infection [Recovered/Resolved]
  - Eyelids pruritus [Unknown]
  - Eye pruritus [Unknown]
  - Eye pain [Unknown]
  - Inflammation [Unknown]
  - Pruritus [Unknown]
